FAERS Safety Report 5322343-X (Version None)
Quarter: 2007Q2

REPORT INFORMATION
  Report Type: 
  Country: None (occurrence: None)
  Receive Date: 20070511
  Receipt Date: 20070504
  Transmission Date: 20071010
  Serious: Yes (Other)
  Sender: FDA-Public Use
  Company Number: US-ELI_LILLY_AND_COMPANY-US200611001428

PATIENT
  Age: 22 Year
  Sex: Female

DRUGS (3)
  1. ILETIN [Suspect]
     Indication: DIABETES MELLITUS INSULIN-DEPENDENT
     Dates: start: 19470101
  2. ILETIN [Suspect]
     Dates: start: 19470101
  3. INSULIN, ANIMAL [Suspect]
     Indication: DIABETES MELLITUS INSULIN-DEPENDENT
     Dates: start: 19440101, end: 19470101

REACTIONS (9)
  - COGNITIVE DISORDER [None]
  - CONVULSION [None]
  - DRUG EXPOSURE DURING PREGNANCY [None]
  - FEELING ABNORMAL [None]
  - HYPERGLYCAEMIA [None]
  - HYPERTENSION [None]
  - HYPOGLYCAEMIA [None]
  - NAUSEA [None]
  - VISUAL ACUITY REDUCED [None]
